FAERS Safety Report 11857449 (Version 1)
Quarter: 2015Q4

REPORT INFORMATION
  Report Type: Spontaneous
  Country: US (occurrence: US)
  Receive Date: 20151221
  Receipt Date: 20151221
  Transmission Date: 20160305
  Serious: Yes (Other)
  Sender: FDA-Public Use
  Company Number: US-PFIZER INC-2015448746

PATIENT
  Age: 55 Year
  Sex: Female
  Weight: 61 kg

DRUGS (3)
  1. CELEBREX [Concomitant]
     Active Substance: CELECOXIB
     Dosage: 1 DF, 3X/DAY
  2. SKELAXIN [Suspect]
     Active Substance: METAXALONE
     Indication: FACIAL SPASM
     Dosage: 800 MG, 4X/DAY
  3. SKELAXIN [Suspect]
     Active Substance: METAXALONE
     Indication: PAIN

REACTIONS (3)
  - Intentional product misuse [Unknown]
  - Demyelination [Unknown]
  - Drug ineffective [Unknown]
